FAERS Safety Report 5502926-4 (Version None)
Quarter: 2007Q4

REPORT INFORMATION
  Report Type: 
  Country: None (occurrence: None)
  Receive Date: 20071031
  Receipt Date: 20071023
  Transmission Date: 20080405
  Serious: Yes (Other)
  Sender: FDA-Public Use
  Company Number: B0430416A

PATIENT
  Age: 61 Year
  Sex: Female
  Weight: 87 kg

DRUGS (2)
  1. GW572016 [Suspect]
     Route: 048
     Dates: start: 20060119, end: 20070914
  2. LETROZOLE [Suspect]
     Dosage: 2.5MG PER DAY
     Route: 048
     Dates: start: 20060119

REACTIONS (2)
  - PAIN IN EXTREMITY [None]
  - PARONYCHIA [None]
